FAERS Safety Report 6297758-6 (Version None)
Quarter: 2009Q3

REPORT INFORMATION
  Report Type: 
  Country: None (occurrence: None)
  Receive Date: 20090804
  Receipt Date: 20090804
  Transmission Date: 20100115
  Serious: Yes (Hospitalization)
  Sender: FDA-Public Use
  Company Number: None

PATIENT
  Sex: Female
  Weight: 68.0396 kg

DRUGS (2)
  1. WELLBUTRIN [Suspect]
     Indication: DEPRESSION
     Dosage: 200 MG TWICE DAILY PO USED APP 2 YEARS
     Route: 048
  2. WELLBUTRIN [Concomitant]

REACTIONS (4)
  - DEPRESSION [None]
  - DRY MOUTH [None]
  - IRRITABILITY [None]
  - PRODUCT SUBSTITUTION ISSUE [None]
